FAERS Safety Report 16684462 (Version 1)
Quarter: 2019Q3

REPORT INFORMATION
  Report Type: Spontaneous
  Country: FR (occurrence: FR)
  Receive Date: 20190808
  Receipt Date: 20190808
  Transmission Date: 20191004
  Serious: Yes (Hospitalization)
  Sender: FDA-Public Use
  Company Number: PHHY2019FR181804

PATIENT
  Age: 74 Year
  Sex: Female
  Weight: 98.9 kg

DRUGS (3)
  1. GEMCITABINE. [Suspect]
     Active Substance: GEMCITABINE
     Indication: CHOLANGIOCARCINOMA
     Dosage: 1890 MG, TOTAL
     Route: 041
     Dates: start: 20190719, end: 20190719
  2. ZOPHREN [Suspect]
     Active Substance: ONDANSETRON
     Indication: PROPHYLAXIS
     Dosage: 1 DF, TOTAL
     Route: 041
     Dates: start: 20190719, end: 20190719
  3. OXALIPLATINE HOSPIRA [Suspect]
     Active Substance: OXALIPLATIN
     Indication: CHOLANGIOCARCINOMA
     Dosage: 189 MG, TOTAL
     Route: 041
     Dates: start: 20190719, end: 20190719

REACTIONS (1)
  - Infusion related reaction [Recovered/Resolved]

NARRATIVE: CASE EVENT DATE: 20190719
